FAERS Safety Report 25941520 (Version 1)
Quarter: 2025Q4

REPORT INFORMATION
  Report Type: Spontaneous
  Country: US (occurrence: None)
  Receive Date: 20251020
  Receipt Date: 20251020
  Transmission Date: 20260117
  Serious: Yes (Hospitalization)
  Sender: FDA-CTU
  Company Number: None

PATIENT
  Sex: Male

DRUGS (2)
  1. PIRFENIDONE [Suspect]
     Active Substance: PIRFENIDONE
     Indication: Idiopathic pulmonary fibrosis
     Dosage: 801 MG  3 TIMES A DAY ORAL ?
     Route: 048
  2. ACTEMRA ACTPEN [Concomitant]
     Active Substance: TOCILIZUMAB

REACTIONS (5)
  - Fibrosis [None]
  - Atrial fibrillation [None]
  - Dyspnoea [None]
  - Nausea [None]
  - Diarrhoea [None]
